FAERS Safety Report 14728680 (Version 2)
Quarter: 2018Q3

REPORT INFORMATION
  Report Type: Spontaneous
  Country: IT (occurrence: IT)
  Receive Date: 20180406
  Receipt Date: 20180817
  Transmission Date: 20181010
  Serious: Yes (Life-Threatening)
  Sender: FDA-Public Use
  Company Number: IT-TEVA-2018-IT-876746

PATIENT
  Age: 49 Year
  Sex: Female

DRUGS (6)
  1. EMEND [Concomitant]
     Active Substance: APREPITANT
     Route: 065
  2. DEXAMETHASONE PHOSPHATE [Concomitant]
     Active Substance: DEXAMETHASONE PHOSPHATE
     Route: 065
  3. PACLITAXEL. [Suspect]
     Active Substance: PACLITAXEL
     Indication: CHEMOTHERAPY
     Route: 065
     Dates: start: 20180115
  4. TRIMETON [Concomitant]
     Active Substance: CHLORPHENIRAMINE MALEATE
     Route: 065
  5. ALOXI 500 MICROGRAMS SOFT CAPSULES [Concomitant]
     Route: 065
  6. RANITIDINA S.A.L.F. [Concomitant]
     Route: 065

REACTIONS (7)
  - Hypoventilation [Recovered/Resolved]
  - Ventricular extrasystoles [Recovered/Resolved]
  - Back pain [Recovered/Resolved]
  - Hypotension [Recovered/Resolved]
  - Hypoxia [Recovered/Resolved]
  - Metabolic acidosis [Recovered/Resolved]
  - Abdominal pain [Recovered/Resolved]

NARRATIVE: CASE EVENT DATE: 20180115
